FAERS Safety Report 14055999 (Version 2)
Quarter: 2018Q1

REPORT INFORMATION
  Report Type: Spontaneous
  Country: JP (occurrence: JP)
  Receive Date: 20171006
  Receipt Date: 20180313
  Transmission Date: 20180508
  Serious: Yes (Death, Other)
  Sender: FDA-Public Use
  Company Number: JP-009507513-1709JPN002990J

PATIENT
  Age: 84 Year
  Sex: Female
  Weight: 45 kg

DRUGS (7)
  1. OXYCODONE [Concomitant]
     Active Substance: OXYCODONE
     Indication: SQUAMOUS CELL CARCINOMA OF LUNG
     Dosage: 5 MG, BID
     Route: 048
  2. NOVAMIN (PROCHLORPERAZINE MALEATE) [Concomitant]
     Active Substance: PROCHLORPERAZINE MALEATE
     Indication: PROPHYLAXIS
     Dosage: 5 MG, QD
     Route: 048
  3. KEYTRUDA [Suspect]
     Active Substance: PEMBROLIZUMAB
     Indication: SQUAMOUS CELL CARCINOMA
     Dosage: 200 MG, Q3W
     Route: 041
     Dates: start: 20170620, end: 20170801
  4. WARFARIN [Concomitant]
     Active Substance: WARFARIN
     Dosage: 0.5 MG, QD
     Route: 048
  5. CELECOX [Concomitant]
     Active Substance: CELECOXIB
     Indication: SQUAMOUS CELL CARCINOMA OF LUNG
     Dosage: 100 MG, BID
     Route: 048
  6. MAGLAX [Concomitant]
     Active Substance: MAGNESIUM OXIDE
     Indication: PROPHYLAXIS
     Dosage: 500 MG, TID
     Route: 048
  7. BETANIS [Concomitant]
     Active Substance: MIRABEGRON
     Dosage: 50 MG, QD
     Route: 048

REACTIONS (2)
  - General physical health deterioration [Fatal]
  - Lung carcinoma cell type unspecified recurrent [Fatal]

NARRATIVE: CASE EVENT DATE: 20170911
